FAERS Safety Report 18621105 (Version 3)
Quarter: 2020Q4

REPORT INFORMATION
  Report Type: Report from Study
  Country: CA (occurrence: CA)
  Receive Date: 20201216
  Receipt Date: 20201222
  Transmission Date: 20210114
  Serious: Yes (Hospitalization, Other)
  Sender: FDA-Public Use
  Company Number: CA-JNJFOC-20201034294

PATIENT
  Age: 7 Decade
  Sex: Female
  Weight: 68 kg

DRUGS (2)
  1. STELARA [Suspect]
     Active Substance: USTEKINUMAB
     Indication: COLITIS ULCERATIVE
     Route: 058
     Dates: start: 20200825
  2. STELARA [Suspect]
     Active Substance: USTEKINUMAB

REACTIONS (5)
  - Urinary tract infection [Unknown]
  - Constipation [Unknown]
  - Peripheral swelling [Unknown]
  - Pancreatic mass [Unknown]
  - Splenectomy [Unknown]

NARRATIVE: CASE EVENT DATE: 2020
